FAERS Safety Report 21366531 (Version 2)
Quarter: 2022Q4

REPORT INFORMATION
  Report Type: Spontaneous
  Country: US (occurrence: None)
  Receive Date: 20220923
  Receipt Date: 20221003
  Transmission Date: 20230112
  Serious: No
  Sender: FDA-Public Use
  Company Number: US-Inventia-000223

PATIENT
  Age: 58 Year
  Sex: Male

DRUGS (1)
  1. TELMISARTAN [Suspect]
     Active Substance: TELMISARTAN
     Indication: Blood pressure measurement
     Dosage: 40 MG ONCE A DAY
     Route: 048
     Dates: start: 20220901, end: 20220908

REACTIONS (5)
  - Dizziness [Recovered/Resolved]
  - Pain [Recovered/Resolved]
  - Somnolence [Recovered/Resolved]
  - Drug ineffective [Unknown]
  - Product quality issue [Unknown]

NARRATIVE: CASE EVENT DATE: 20220901
